FAERS Safety Report 9187122 (Version 1)
Quarter: 2013Q1

REPORT INFORMATION
  Report Type: Spontaneous
  Country: CO (occurrence: CO)
  Receive Date: 20130325
  Receipt Date: 20130325
  Transmission Date: 20140127
  Serious: Yes (Other)
  Sender: FDA-Public Use
  Company Number: CO-JNJFOC-20130308164

PATIENT
  Age: 67 Year
  Sex: Male
  Weight: 75 kg

DRUGS (2)
  1. RISPERDAL [Suspect]
     Indication: PSYCHOTIC DISORDER
     Route: 048
     Dates: start: 20091024, end: 20130303
  2. HALOPERIDOL [Suspect]
     Indication: PSYCHOTIC DISORDER
     Dosage: 30 DROP 8 HOUR
     Route: 048
     Dates: start: 20130307

REACTIONS (5)
  - Myocardial infarction [Unknown]
  - Thrombosis [Unknown]
  - Grand mal convulsion [Recovered/Resolved]
  - Balance disorder [Recovered/Resolved]
  - Urinary incontinence [Recovered/Resolved]
